FAERS Safety Report 5325591-8 (Version None)
Quarter: 2007Q2

REPORT INFORMATION
  Report Type: 
  Country: None (occurrence: None)
  Receive Date: 20070515
  Receipt Date: 20070502
  Transmission Date: 20071010
  Serious: Yes (Hospitalization)
  Sender: FDA-Public Use
  Company Number: NL-ELI_LILLY_AND_COMPANY-NL200704001089

PATIENT
  Age: 46 Year
  Sex: Female

DRUGS (1)
  1. PROZAC [Suspect]
     Indication: DEPRESSION
     Dosage: 20 MG, UNK
     Dates: start: 20040101, end: 20061201

REACTIONS (6)
  - DEAFNESS BILATERAL [None]
  - DIZZINESS [None]
  - NAUSEA [None]
  - NYSTAGMUS [None]
  - URINARY RETENTION [None]
  - VOMITING [None]
